FAERS Safety Report 4276573-9 (Version None)
Quarter: 2004Q1

REPORT INFORMATION
  Report Type: 
  Country: None (occurrence: None)
  Receive Date: 20040120
  Receipt Date: 20040108
  Transmission Date: 20041129
  Serious: Yes (Life-Threatening, Hospitalization, Other)
  Sender: FDA-Public Use
  Company Number: A0492229A

PATIENT
  Age: 32 Year
  Sex: Male

DRUGS (1)
  1. DIPHENHYDRAMINE HYDROCHLORIDE CAP [Suspect]
     Dosage: 25 MG/ ORAL
     Route: 048

REACTIONS (12)
  - ABNORMAL BEHAVIOUR [None]
  - BLOOD URINE PRESENT [None]
  - BOWEL SOUNDS ABNORMAL [None]
  - COMA [None]
  - FALSE POSITIVE LABORATORY RESULT [None]
  - HALLUCINATION [None]
  - HYPERREFLEXIA [None]
  - INTENTIONAL OVERDOSE [None]
  - MYDRIASIS [None]
  - RHABDOMYOLYSIS [None]
  - TACHYCARDIA [None]
  - WHITE BLOOD CELL COUNT INCREASED [None]
